FAERS Safety Report 25979336 (Version 2)
Quarter: 2025Q4

REPORT INFORMATION
  Report Type: Spontaneous
  Country: RU (occurrence: RU)
  Receive Date: 20251030
  Receipt Date: 20251112
  Transmission Date: 20260118
  Serious: Yes (Hospitalization, Other)
  Sender: RANBAXY
  Company Number: RU-SUN PHARMACEUTICAL INDUSTRIES LTD-2025R1-534025

PATIENT
  Age: 6 Year
  Sex: Male

DRUGS (3)
  1. CEFTRIAXONE [Suspect]
     Active Substance: CEFTRIAXONE
     Indication: Encephalitis
     Dosage: 2 GRAM, QD
     Route: 042
  2. ACETAMINOPHEN [Suspect]
     Active Substance: ACETAMINOPHEN
     Indication: Encephalitis
     Dosage: UNK, PRN (300 MG)
     Route: 048
  3. INTERFERON ALFA-2B [Suspect]
     Active Substance: INTERFERON ALFA-2B
     Indication: Encephalitis
     Dosage: UNK, BID (1 SUPPOSITORY)
     Route: 054

REACTIONS (3)
  - Enterovirus infection [Unknown]
  - Condition aggravated [Unknown]
  - Drug ineffective [Unknown]
